FAERS Safety Report 8839688 (Version 1)
Quarter: 2012Q4

REPORT INFORMATION
  Report Type: 
  Country: BR (occurrence: BR)
  Receive Date: 20121015
  Receipt Date: 20121015
  Transmission Date: 20130627
  Serious: Yes (Hospitalization, Other)
  Sender: FDA-Public Use
  Company Number: PHHY2012BR090594

PATIENT
  Age: 64 Year
  Sex: Female

DRUGS (3)
  1. DIOVAN [Suspect]
     Indication: HYPERTENSION
     Dosage: 2 DF, QD in the morning
     Route: 048
  2. PARACETAMOL [Concomitant]
     Indication: PAIN
  3. DORFLEX [Concomitant]
     Indication: PAIN

REACTIONS (4)
  - Myocardial infarction [Recovered/Resolved]
  - Diabetes mellitus [Unknown]
  - Weight increased [Unknown]
  - Emotional disorder [Unknown]
